FAERS Safety Report 24922898 (Version 2)
Quarter: 2025Q2

REPORT INFORMATION
  Report Type: Report from Study
  Country: US (occurrence: US)
  Receive Date: 20250204
  Receipt Date: 20250417
  Transmission Date: 20250716
  Serious: Yes (Death)
  Sender: ABBVIE
  Company Number: US-ABBVIE-6116656

PATIENT
  Age: 76 Year
  Sex: Female
  Weight: 73 kg

DRUGS (1)
  1. VENCLEXTA [Suspect]
     Active Substance: VENETOCLAX
     Indication: Plasma cell myeloma
     Dosage: TAKE 1 TABLET BY MOUTH EVERY DAY FOR 14 DAYS, THEN TAKE 14 DAYS OFF DO NOT BREAK OR CRUSH THE TABLET
     Route: 048

REACTIONS (1)
  - Death [Fatal]
